FAERS Safety Report 7626141-3 (Version None)
Quarter: 2011Q3

REPORT INFORMATION
  Report Type: 
  Country: None (occurrence: None)
  Receive Date: 20110701
  Receipt Date: 20100831
  Transmission Date: 20111222
  Serious: No
  Sender: FDA-Public Use
  Company Number: 7016425

PATIENT
  Age: 67 Year
  Sex: Female

DRUGS (3)
  1. REBIF [Suspect]
     Indication: PRODUCT USED FOR UNKNOWN INDICATION
     Dosage: 22 MCG, 3 IN 1 WK, SUBCUTANEOUS
     Route: 058
     Dates: start: 20100806
  2. SYNTHROID [Concomitant]
  3. ACETAMINOPHEN [Concomitant]

REACTIONS (3)
  - HYPERHIDROSIS [None]
  - PAIN IN EXTREMITY [None]
  - ARTHRALGIA [None]
